FAERS Safety Report 5057656-2 (Version None)
Quarter: 2006Q3

REPORT INFORMATION
  Report Type: 
  Country: None (occurrence: None)
  Receive Date: 20060721
  Receipt Date: 20060109
  Transmission Date: 20061208
  Serious: No
  Sender: FDA-Public Use
  Company Number: US-GLAXOSMITHKLINE-A0588356A

PATIENT
  Age: 73 Year
  Sex: Male

DRUGS (4)
  1. AVANDIA [Suspect]
     Dosage: 2MG PER DAY
     Route: 048
     Dates: end: 20060108
  2. LIPITOR [Concomitant]
  3. AVALIDE [Concomitant]
  4. VESICARE [Concomitant]

REACTIONS (1)
  - DIPLOPIA [None]
